FAERS Safety Report 11926754 (Version 1)
Quarter: 2016Q1

REPORT INFORMATION
  Report Type: Spontaneous
  Country: US (occurrence: None)
  Receive Date: 20160115
  Receipt Date: 20160115
  Transmission Date: 20160526
  Serious: Yes (Disabling)
  Sender: FDA-Public Use
  Company Number: None

PATIENT
  Age: 52 Year
  Sex: Female
  Weight: 68.49 kg

DRUGS (13)
  1. CARVEDILOL. [Concomitant]
     Active Substance: CARVEDILOL
  2. BIOTIN [Concomitant]
     Active Substance: BIOTIN
  3. KLORCON [Concomitant]
  4. LISINOPRIL 5 MG LUPIN [Suspect]
     Active Substance: LISINOPRIL
     Indication: CARDIOMYOPATHY
     Dosage: TAKEN BY  MOUTH
     Route: 048
     Dates: start: 20150112, end: 20160104
  5. SPIRONOLACTON [Concomitant]
     Active Substance: SPIRONOLACTONE
  6. ASA [Concomitant]
     Active Substance: ASPIRIN
  7. VITAMIN D3 [Concomitant]
     Active Substance: CHOLECALCIFEROL
  8. CENTRUM [Concomitant]
     Active Substance: VITAMINS
  9. LISINOPRIL 5 MG LUPIN [Suspect]
     Active Substance: LISINOPRIL
     Indication: CARDIAC FAILURE CONGESTIVE
     Dosage: TAKEN BY  MOUTH
     Route: 048
     Dates: start: 20150112, end: 20160104
  10. LISINOPRIL 5 MG LUPIN [Suspect]
     Active Substance: LISINOPRIL
     Indication: HYPERTENSION
     Dosage: TAKEN BY  MOUTH
     Route: 048
     Dates: start: 20150112, end: 20160104
  11. COQ10 [Concomitant]
     Active Substance: UBIDECARENONE
  12. FUROSEMIDE. [Concomitant]
     Active Substance: FUROSEMIDE
  13. VITAMIN C [Concomitant]
     Active Substance: ASCORBIC ACID

REACTIONS (3)
  - Angioedema [None]
  - Vertigo [None]
  - Alopecia [None]

NARRATIVE: CASE EVENT DATE: 20151221
